FAERS Safety Report 16125127 (Version 2)
Quarter: 2019Q2

REPORT INFORMATION
  Report Type: Not Available
  Country: US (occurrence: US)
  Receive Date: 20190327
  Receipt Date: 20190411
  Transmission Date: 20190711
  Serious: Yes (Hospitalization)
  Sender: FDA-Public Use
  Company Number: US-NEUROCRINE BIOSCIENCES INC.-2019NBI00760

PATIENT
  Age: 76 Year
  Sex: Male

DRUGS (13)
  1. CHEMOTHERAPY [Suspect]
     Active Substance: UNSPECIFIED INGREDIENT
     Indication: PRODUCT USED FOR UNKNOWN INDICATION
     Dates: start: 20190117
  2. DORZOLAMIDE [Concomitant]
     Active Substance: DORZOLAMIDE
     Indication: GLAUCOMA SURGERY
  3. FLUOROMETHALONE [Concomitant]
     Indication: CORNEAL TRANSPLANT
     Dosage: ONE DROP IN RIGHT EYE DAILY
  4. DORZOLAMIDE [Concomitant]
     Active Substance: DORZOLAMIDE
     Indication: CORNEAL TRANSPLANT
     Dosage: ONE DROP EACH EYE TWICE A DAY
  5. LATANOPROST. [Concomitant]
     Active Substance: LATANOPROST
     Indication: CORNEAL TRANSPLANT
     Dosage: ONE DROP IN RIGHT EYE ONCE DAILY
  6. INGREZZA [Suspect]
     Active Substance: VALBENAZINE
     Indication: TARDIVE DYSKINESIA
     Route: 048
     Dates: start: 20180904
  7. STOOL SOFTENER (DOCUSATE) [Concomitant]
     Active Substance: DOCUSATE
     Dosage: IN THE MORNING
  8. SEROQUEL [Concomitant]
     Active Substance: QUETIAPINE FUMARATE
     Dosage: 100 MG TID; 200 MG HS
  9. DORZOLAMIDE [Concomitant]
     Active Substance: DORZOLAMIDE
     Indication: CATARACT OPERATION
  10. KLONOPIN [Concomitant]
     Active Substance: CLONAZEPAM
     Dosage: 1 MG BID AND Q 4 HOURS PRN
     Route: 048
  11. PROBIOTIC [Concomitant]
     Active Substance: PROBIOTICS NOS
     Dosage: IN THE MORNING
  12. EFFEXOR XR [Concomitant]
     Active Substance: VENLAFAXINE HYDROCHLORIDE
     Route: 048
  13. VITAMIN [Concomitant]
     Active Substance: VITAMINS
     Dosage: IN THE MORNING

REACTIONS (1)
  - Clostridium difficile infection [Unknown]

NARRATIVE: CASE EVENT DATE: 20190126
